FAERS Safety Report 16579667 (Version 1)
Quarter: 2019Q3

REPORT INFORMATION
  Report Type: Spontaneous
  Country: US (occurrence: US)
  Receive Date: 20190716
  Receipt Date: 20190716
  Transmission Date: 20191004
  Serious: No
  Sender: FDA-Public Use
  Company Number: US-BAYER-2019-131004

PATIENT
  Age: 55 Year
  Sex: Male

DRUGS (1)
  1. GENERIC PMS STUDY FOR INTERFERON BETA - 1B (250?G) [Suspect]
     Active Substance: INTERFERON BETA-1B
     Dosage: UNK, QOD
     Route: 058
     Dates: start: 199807

REACTIONS (1)
  - Injection site pain [None]

NARRATIVE: CASE EVENT DATE: 20190710
